FAERS Safety Report 11839215 (Version 2)
Quarter: 2016Q2

REPORT INFORMATION
  Report Type: Spontaneous
  Country: US (occurrence: US)
  Receive Date: 20151216
  Receipt Date: 20160510
  Transmission Date: 20160815
  Serious: No
  Sender: FDA-Public Use
  Company Number: US-B.I. PHARMACEUTICALS,INC./RIDGEFIELD-2015-BI-68264BP

PATIENT
  Age: 67 Year
  Sex: Male
  Weight: 85.73 kg

DRUGS (1)
  1. JARDIANCE [Suspect]
     Active Substance: EMPAGLIFLOZIN
     Indication: TYPE 2 DIABETES MELLITUS
     Dosage: 10 MG
     Route: 048
     Dates: start: 20151116

REACTIONS (2)
  - Pollakiuria [Unknown]
  - Dry mouth [Unknown]

NARRATIVE: CASE EVENT DATE: 20151119
